FAERS Safety Report 9774346 (Version 2)
Quarter: 2014Q1

REPORT INFORMATION
  Report Type: Spontaneous
  Country: AU (occurrence: AU)
  Receive Date: 20131220
  Receipt Date: 20140222
  Transmission Date: 20141002
  Serious: Yes (Other)
  Sender: FDA-Public Use
  Company Number: AU-MERCK-1312AUS008166

PATIENT
  Age: 51 Year
  Sex: Male
  Weight: 72 kg

DRUGS (8)
  1. VICTRELIS 200 MG [Suspect]
     Indication: HEPATITIS C
     Dosage: 800 (UNIT NOT REPORTED) ONCE IN 3 DAYS
     Route: 048
     Dates: start: 20120704, end: 20120913
  2. RIBAVIRIN [Suspect]
     Indication: HEPATITIS C
     Dosage: 600 X 2 DIVIDED DOSES DAILY ONCE IN TWO DAYS
     Route: 048
     Dates: start: 20120608, end: 20120913
  3. PEGINTERFERON ALFA-2B [Suspect]
     Indication: HEPATITIS C
     Dosage: 180, QW
     Route: 058
     Dates: start: 20120608, end: 20120913
  4. DIAZEPAM [Concomitant]
     Indication: ANXIETY
     Dosage: 5 MG, QD
     Route: 048
  5. DIPROSONE [Concomitant]
     Indication: PSORIASIS
     Dosage: X 2 DAILY
     Route: 061
  6. PANADEINE FORTE [Concomitant]
     Indication: PAIN
     Dosage: 2 X QID
  7. RECTINOL [Concomitant]
     Indication: HAEMORRHOIDS
     Dosage: 2-3 DAILY
     Route: 061
  8. SPIRIVA [Concomitant]
     Indication: ASCITES
     Dosage: 18 MICROGRAM, QD
     Route: 048
     Dates: end: 201211

REACTIONS (1)
  - Ascites [Recovered/Resolved]
